FAERS Safety Report 14926707 (Version 2)
Quarter: 2020Q1

REPORT INFORMATION
  Report Type: Spontaneous
  Country: JP (occurrence: JP)
  Receive Date: 20180523
  Receipt Date: 20200214
  Transmission Date: 20200409
  Serious: Yes (Hospitalization, Congenital Anomaly, Other)
  Sender: FDA-Public Use
  Company Number: JP-ASTELLAS-2018JP009040

PATIENT
  Age: 3 Day
  Sex: Male
  Weight: 1 kg

DRUGS (22)
  1. PROGRAF [Suspect]
     Active Substance: TACROLIMUS
     Indication: FOETAL EXPOSURE DURING PREGNANCY
     Route: 064
     Dates: start: 2016, end: 20160802
  2. PREDONINE [PREDNISOLONE ACETATE] [Concomitant]
     Active Substance: PREDNISOLONE ACETATE
     Indication: EXPOSURE VIA BREAST MILK
     Route: 064
     Dates: start: 20161222, end: 20170209
  3. FOLIAMIN [Concomitant]
     Active Substance: FOLIC ACID
     Indication: EXPOSURE VIA BREAST MILK
     Route: 063
     Dates: start: 20170209
  4. ALFAROL [Concomitant]
     Active Substance: ALFACALCIDOL
     Indication: FOETAL EXPOSURE DURING PREGNANCY
     Route: 064
     Dates: start: 2016, end: 20161013
  5. UTEMERIN [Concomitant]
     Active Substance: RITODRINE
     Indication: FOETAL EXPOSURE DURING PREGNANCY
     Route: 064
     Dates: start: 20161220, end: 20170209
  6. PLATELETS [Concomitant]
     Active Substance: HUMAN PLATELET, ALLOGENIC
     Indication: FOETAL EXPOSURE DURING PREGNANCY
     Route: 064
     Dates: start: 20170209, end: 20170209
  7. PREDONINE [PREDNISOLONE ACETATE] [Concomitant]
     Active Substance: PREDNISOLONE ACETATE
     Indication: FOETAL EXPOSURE DURING PREGNANCY
     Route: 064
     Dates: start: 2016, end: 20161221
  8. PLATELETS [Concomitant]
     Active Substance: HUMAN PLATELET, ALLOGENIC
     Route: 064
     Dates: start: 20170209, end: 20170209
  9. KENKETU GLOVENIN-I [Concomitant]
     Active Substance: HUMAN IMMUNOGLOBULIN G
     Indication: FOETAL EXPOSURE DURING PREGNANCY
     Route: 064
     Dates: start: 20170113, end: 20170117
  10. PROGRAF [Suspect]
     Active Substance: TACROLIMUS
     Route: 063
     Dates: start: 20170209
  11. FAMOTIDINE. [Concomitant]
     Active Substance: FAMOTIDINE
     Indication: EXPOSURE VIA BREAST MILK
     Route: 063
     Dates: start: 20170209
  12. FERROUS SODIUM CITRATE [Concomitant]
     Active Substance: SODIUM FERROUS CITRATE
     Indication: FOETAL EXPOSURE DURING PREGNANCY
     Route: 064
     Dates: start: 2016, end: 20170209
  13. FERROUS SODIUM CITRATE [Concomitant]
     Active Substance: SODIUM FERROUS CITRATE
     Indication: EXPOSURE VIA BREAST MILK
     Route: 063
     Dates: start: 20170209
  14. FOLIAMIN [Concomitant]
     Active Substance: FOLIC ACID
     Indication: FOETAL EXPOSURE DURING PREGNANCY
     Route: 064
     Dates: start: 2016, end: 20170209
  15. MAGMITT [Concomitant]
     Active Substance: MAGNESIUM OXIDE
     Indication: FOETAL EXPOSURE DURING PREGNANCY
     Dosage: 2 G/DAY, THRICE DAILY
     Route: 064
     Dates: start: 2016, end: 20170120
  16. MAGMITT [Concomitant]
     Active Substance: MAGNESIUM OXIDE
  17. FAMOTIDINE. [Concomitant]
     Active Substance: FAMOTIDINE
     Indication: FOETAL EXPOSURE DURING PREGNANCY
     Route: 064
     Dates: start: 2016, end: 20170209
  18. HEPARIN [Concomitant]
     Active Substance: HEPARIN SODIUM
     Indication: FOETAL EXPOSURE DURING PREGNANCY
     Dosage: UNK UNK, UNKNOWN FREQ.
     Route: 064
  19. MIYA-BM [Concomitant]
     Active Substance: CLOSTRIDIUM BUTYRICUM SPORES STRAIN M-55
     Indication: FOETAL EXPOSURE DURING PREGNANCY
     Dosage: 1 TABLET, THRICE DAILY
     Route: 064
     Dates: start: 2016, end: 20170115
  20. CLEXANE [Concomitant]
     Active Substance: ENOXAPARIN SODIUM
     Indication: FOETAL EXPOSURE DURING PREGNANCY
     Route: 064
     Dates: start: 20170113, end: 20170118
  21. PROGRAF [Suspect]
     Active Substance: TACROLIMUS
     Indication: EXPOSURE VIA BREAST MILK
     Route: 064
     Dates: start: 201610, end: 20170209
  22. PREDONINE [PREDNISOLONE ACETATE] [Concomitant]
     Active Substance: PREDNISOLONE ACETATE
     Route: 063
     Dates: start: 20170209

REACTIONS (3)
  - Exposure via breast milk [Unknown]
  - Neonatal respiratory distress syndrome [Recovered/Resolved]
  - Low birth weight baby [Recovered/Resolved]

NARRATIVE: CASE EVENT DATE: 20170212
